FAERS Safety Report 17781255 (Version 1)
Quarter: 2020Q2

REPORT INFORMATION
  Report Type: Spontaneous
  Country: US (occurrence: US)
  Receive Date: 20200513
  Receipt Date: 20200513
  Transmission Date: 20200714
  Serious: Yes (Hospitalization)
  Sender: FDA-Public Use
  Company Number: None

PATIENT
  Age: 69 Year
  Sex: Male
  Weight: 84 kg

DRUGS (3)
  1. MIRTAZAPINE (MIRTAZAPINE 15MG TAB) [Suspect]
     Active Substance: MIRTAZAPINE
     Indication: MOOD SWINGS
     Route: 048
     Dates: start: 20200219, end: 20200221
  2. CEFEPIME (CEFEPIME HCL 2GM/BAG INJ) [Suspect]
     Active Substance: CEFEPIME HYDROCHLORIDE
     Indication: OSTEOMYELITIS
     Route: 042
     Dates: start: 20200121, end: 20200221
  3. MIRTAZAPINE (MIRTAZAPINE 15MG TAB) [Suspect]
     Active Substance: MIRTAZAPINE
     Indication: MAJOR DEPRESSION
     Route: 048
     Dates: start: 20200219, end: 20200221

REACTIONS (2)
  - Dysarthria [None]
  - Mental status changes [None]

NARRATIVE: CASE EVENT DATE: 20200220
